FAERS Safety Report 5757599-2 (Version None)
Quarter: 2008Q2

REPORT INFORMATION
  Report Type: 
  Country: None (occurrence: None)
  Receive Date: 20080603
  Receipt Date: 20080523
  Transmission Date: 20081010
  Serious: Yes (Other)
  Sender: FDA-Public Use
  Company Number: GB-PFIZER INC-2008026835

PATIENT
  Age: 51 Year
  Sex: Female
  Weight: 85 kg

DRUGS (3)
  1. CHANTIX [Suspect]
     Indication: SMOKING CESSATION THERAPY
     Route: 048
     Dates: start: 20071128, end: 20080105
  2. CANDESARTAN [Concomitant]
     Route: 048
  3. HORMONIN [Concomitant]

REACTIONS (3)
  - ANHEDONIA [None]
  - APATHY [None]
  - SUICIDAL IDEATION [None]
